FAERS Safety Report 5704129-7 (Version None)
Quarter: 2008Q2

REPORT INFORMATION
  Report Type: 
  Country: None (occurrence: None)
  Receive Date: 20080414
  Receipt Date: 20080404
  Transmission Date: 20081010
  Serious: Yes (Other)
  Sender: FDA-Public Use
  Company Number: SE-JNJFOC-20080402032

PATIENT
  Age: 49 Year
  Sex: Female

DRUGS (14)
  1. REMICADE [Suspect]
  2. REMICADE [Suspect]
  3. REMICADE [Suspect]
  4. REMICADE [Suspect]
  5. REMICADE [Suspect]
     Indication: RHEUMATOID ARTHRITIS
  6. SERETIDE [Concomitant]
  7. BRICANYL [Concomitant]
  8. TIBINDE [Concomitant]
  9. PYRIDOXIN [Concomitant]
  10. IMOVANE [Concomitant]
  11. THERALEN [Concomitant]
  12. FLUOXETINE [Concomitant]
  13. OXASCAND [Concomitant]
  14. PREDNISOLONE [Concomitant]

REACTIONS (1)
  - ASTHMA [None]
